FAERS Safety Report 8233571-8 (Version None)
Quarter: 2012Q1

REPORT INFORMATION
  Report Type: 
  Country: None (occurrence: None)
  Receive Date: 20120326
  Receipt Date: 20120312
  Transmission Date: 20120608
  Serious: Yes (Hospitalization)
  Sender: FDA-Public Use
  Company Number: PHHY2012AU023294

PATIENT
  Sex: Female

DRUGS (2)
  1. CLOZARIL [Suspect]
     Dosage: UNK
     Dates: start: 20030305, end: 20060101
  2. CLOZAPINE [Suspect]
     Dosage: UNK
     Dates: start: 20060101

REACTIONS (1)
  - LOSS OF CONSCIOUSNESS [None]
